FAERS Safety Report 7411813-6 (Version None)
Quarter: 2011Q2

REPORT INFORMATION
  Report Type: 
  Country: None (occurrence: None)
  Receive Date: 20110413
  Receipt Date: 20110404
  Transmission Date: 20111010
  Serious: Yes (Other)
  Sender: FDA-Public Use
  Company Number: US-NOVOPROD-326095

PATIENT
  Age: 54 Year
  Sex: Male

DRUGS (2)
  1. VICTOZA [Suspect]
     Indication: TYPE 2 DIABETES MELLITUS
     Dosage: UNK
     Route: 058
     Dates: start: 20100101
  2. METFORMIN [Concomitant]
     Indication: TYPE 2 DIABETES MELLITUS
     Dosage: UNK

REACTIONS (1)
  - RHABDOMYOSARCOMA [None]
